FAERS Safety Report 10157641 (Version 1)
Quarter: 2014Q2

REPORT INFORMATION
  Report Type: Spontaneous
  Country: US (occurrence: US)
  Receive Date: 20140507
  Receipt Date: 20140507
  Transmission Date: 20141212
  Serious: No
  Sender: FDA-Public Use
  Company Number: US-BAXTER-2014BAX021635

PATIENT
  Age: 59 Year
  Sex: Male

DRUGS (2)
  1. 0.9% SODIUM CHLORIDE INJECTION, USP IN MINI-BAG PLUS CONTAINER [Suspect]
     Indication: MEDICATION DILUTION
     Dosage: OVER 30 MINUTES
     Route: 042
     Dates: end: 20140417
  2. PIPERACILLIN TAZOBACTAM [Concomitant]
     Indication: DEVICE RELATED INFECTION
     Dosage: 1 VIAL OVER 30 MINUTES
     Route: 042
     Dates: end: 20140417

REACTIONS (2)
  - Chest discomfort [Recovered/Resolved]
  - Chills [Recovered/Resolved]
